FAERS Safety Report 4666280-2 (Version None)
Quarter: 2005Q2

REPORT INFORMATION
  Report Type: 
  Country: None (occurrence: None)
  Receive Date: 20050518
  Receipt Date: 20050513
  Transmission Date: 20051028
  Serious: No
  Sender: FDA-Public Use
  Company Number: J081-002-001914

PATIENT
  Sex: Female

DRUGS (4)
  1. ARICEPT ODT [Suspect]
     Indication: DEMENTIA ALZHEIMER'S TYPE
     Dosage: SEE IMAGE
     Route: 048
     Dates: start: 20050303, end: 20050317
  2. ARICEPT ODT [Suspect]
     Indication: DEMENTIA ALZHEIMER'S TYPE
     Dosage: SEE IMAGE
     Route: 048
     Dates: start: 20050414
  3. LISINOPRIL [Suspect]
     Dosage: ORAL
     Route: 048
     Dates: end: 20050414
  4. ALLOPURINOL [Concomitant]

REACTIONS (4)
  - BLOOD POTASSIUM DECREASED [None]
  - BLOOD POTASSIUM INCREASED [None]
  - BLOOD SODIUM DECREASED [None]
  - GAIT DISTURBANCE [None]
